FAERS Safety Report 9191703 (Version 2)
Quarter: 2013Q2

REPORT INFORMATION
  Report Type: Spontaneous
  Country: AU (occurrence: AU)
  Receive Date: 20130326
  Receipt Date: 20130420
  Transmission Date: 20140414
  Serious: Yes (Hospitalization)
  Sender: FDA-Public Use
  Company Number: AU-B.I. PHARMACEUTICALS,INC./RIDGEFIELD-2013-AU-00311AU

PATIENT
  Age: 80 Year
  Sex: Male
  Weight: 94 kg

DRUGS (12)
  1. PRADAXA [Suspect]
     Indication: ATRIAL FIBRILLATION
     Dosage: 220 MG
     Dates: start: 2011, end: 20130315
  2. CRESTOR [Concomitant]
     Dosage: 20 MG
  3. LANOXIN [Concomitant]
     Dosage: 125 MCG
  4. FRUSEMIDE [Concomitant]
     Dosage: 80 MG
  5. MEPRAZOL [Concomitant]
  6. MEPRAZOL [Concomitant]
     Dosage: 40 MG
  7. LYRICA [Concomitant]
     Dosage: 75 MG
  8. PANADOL OSTEO [Concomitant]
  9. COLOXYL [Concomitant]
  10. ALDACTONE [Concomitant]
     Dosage: 12.5 MG
  11. VENTOLIN [Concomitant]
  12. PULMICORT [Concomitant]

REACTIONS (7)
  - Pulmonary oedema [Unknown]
  - Cardiomegaly [Unknown]
  - Renal impairment [Unknown]
  - Dyspnoea [Unknown]
  - Haemoglobin decreased [Unknown]
  - Melaena [Recovered/Resolved]
  - Dyspepsia [Unknown]
